FAERS Safety Report 20154383 (Version 2)
Quarter: 2022Q1

REPORT INFORMATION
  Report Type: Spontaneous
  Country: GB (occurrence: GB)
  Receive Date: 20211207
  Receipt Date: 20220114
  Transmission Date: 20220424
  Serious: Yes (Other)
  Sender: FDA-Public Use
  Company Number: GB-LUPIN PHARMACEUTICALS INC.-2021-23806

PATIENT
  Age: 32 Year
  Sex: Female

DRUGS (1)
  1. BUDESONIDE [Suspect]
     Active Substance: BUDESONIDE
     Indication: Autoimmune hepatitis
     Dosage: 6 MILLIGRAM, QD
     Route: 065

REACTIONS (3)
  - Exposure during pregnancy [Unknown]
  - Premature delivery [Unknown]
  - Off label use [Unknown]
